FAERS Safety Report 7501681-6 (Version None)
Quarter: 2011Q2

REPORT INFORMATION
  Report Type: 
  Country: None (occurrence: None)
  Receive Date: 20110525
  Receipt Date: 20110511
  Transmission Date: 20111010
  Serious: Yes (Death)
  Sender: FDA-Public Use
  Company Number: TR-MYLANLABS-2011S1009932

PATIENT
  Age: 11 Year
  Sex: Male

DRUGS (3)
  1. PREDNISOLONE [Suspect]
     Indication: CROHN'S DISEASE
     Route: 065
  2. AZATHIOPRINE [Suspect]
     Indication: CROHN'S DISEASE
     Route: 065
  3. MESALAMINE [Concomitant]
     Indication: CROHN'S DISEASE
     Route: 065

REACTIONS (1)
  - HISTIOCYTOSIS HAEMATOPHAGIC [None]
